FAERS Safety Report 13558339 (Version 2)
Quarter: 2017Q3

REPORT INFORMATION
  Report Type: Report from Study
  Country: IN (occurrence: IN)
  Receive Date: 20170517
  Receipt Date: 20170707
  Transmission Date: 20171127
  Serious: Yes (Other)
  Sender: FDA-Public Use
  Company Number: PHHY2017IN072470

PATIENT
  Age: 57 Year
  Sex: Female
  Weight: 65 kg

DRUGS (7)
  1. TSART [Concomitant]
     Indication: CARDIAC DISORDER
     Dosage: UNK (STARTED 2 YEARS AGO)
     Route: 065
     Dates: end: 201702
  2. IVABRAD [Concomitant]
     Indication: CARDIAC DISORDER
     Dosage: 5 MG, QD
     Route: 048
     Dates: start: 2015
  3. TSART [Concomitant]
     Dosage: UNK
     Route: 065
     Dates: start: 201705
  4. CARDIVAS [Concomitant]
     Indication: BLOOD PRESSURE ABNORMAL
     Dosage: 3.125 MG, QD
     Route: 048
     Dates: start: 2015
  5. VYMADA [Suspect]
     Active Substance: SACUBITRIL\VALSARTAN
     Indication: CARDIAC FAILURE
     Dosage: 100 MG, QD
     Route: 048
     Dates: start: 201702, end: 201705
  6. IVABRAD [Concomitant]
     Indication: BLOOD PRESSURE ABNORMAL
  7. CARDIVAS [Concomitant]
     Indication: CARDIAC DISORDER

REACTIONS (7)
  - Hypertension [Not Recovered/Not Resolved]
  - Gait inability [Recovered/Resolved]
  - Feeling abnormal [Recovered/Resolved]
  - Dizziness [Recovered/Resolved]
  - Incorrect dose administered [Unknown]
  - Asthenia [Recovered/Resolved]
  - Inappropriate schedule of drug administration [Unknown]

NARRATIVE: CASE EVENT DATE: 201702
